FAERS Safety Report 9215086 (Version 1)
Quarter: 2013Q2

REPORT INFORMATION
  Report Type: Spontaneous
  Country: FR (occurrence: FR)
  Receive Date: 20130405
  Receipt Date: 20130405
  Transmission Date: 20140414
  Serious: Yes (Hospitalization)
  Sender: FDA-Public Use
  Company Number: FR-ABBOTT-13P-056-1070595-00

PATIENT
  Age: 49 Year
  Sex: Male

DRUGS (6)
  1. HUMIRA [Suspect]
     Indication: ANKYLOSING SPONDYLITIS
  2. IMUREL [Suspect]
     Indication: ANKYLOSING SPONDYLITIS
     Route: 048
  3. ACETYLSALICYLATE LYSINE [Concomitant]
     Indication: PRODUCT USED FOR UNKNOWN INDICATION
     Route: 048
  4. CARDENSIEL [Concomitant]
     Indication: PRODUCT USED FOR UNKNOWN INDICATION
     Route: 048
  5. RAMIPRIL [Concomitant]
     Indication: PRODUCT USED FOR UNKNOWN INDICATION
     Route: 048
  6. CONTRAMAL [Concomitant]
     Indication: PRODUCT USED FOR UNKNOWN INDICATION
     Route: 048

REACTIONS (12)
  - Asthenia [Recovering/Resolving]
  - Oral fungal infection [Recovering/Resolving]
  - Decreased appetite [Recovering/Resolving]
  - Stomatitis [Recovering/Resolving]
  - General physical health deterioration [Unknown]
  - Weight decreased [Unknown]
  - Aphagia [Unknown]
  - Colitis ulcerative [Recovering/Resolving]
  - Odynophagia [Unknown]
  - Pyrexia [Unknown]
  - Dysphagia [Recovering/Resolving]
  - Dysphonia [Unknown]
